FAERS Safety Report 8735696 (Version 2)
Quarter: 2012Q4

REPORT INFORMATION
  Report Type: 
  Country: US (occurrence: US)
  Receive Date: 20120822
  Receipt Date: 20121024
  Transmission Date: 20130627
  Serious: No
  Sender: FDA-Public Use
  Company Number: US-BAYER-2012-084766

PATIENT
  Age: 19 Year
  Sex: Female
  Weight: 68.03 kg

DRUGS (1)
  1. MIRENA [Suspect]
     Indication: CONTRACEPTION
     Dosage: 20 mg/24hr, CONT
     Route: 015
     Dates: start: 20120405, end: 201206

REACTIONS (3)
  - Amenorrhoea [Not Recovered/Not Resolved]
  - Device expulsion [None]
  - Pregnancy with contraceptive device [Not Recovered/Not Resolved]
